FAERS Safety Report 15203278 (Version 3)
Quarter: 2018Q3

REPORT INFORMATION
  Report Type: Spontaneous
  Country: US (occurrence: US)
  Receive Date: 20180726
  Receipt Date: 20180915
  Transmission Date: 20181010
  Serious: Yes (Other)
  Sender: FDA-Public Use
  Company Number: US-009507513-1807USA011568

PATIENT
  Age: 19 Year
  Sex: Female
  Weight: 82.3 kg

DRUGS (2)
  1. NEXPLANON [Suspect]
     Active Substance: ETONOGESTREL
     Dosage: 1 ROD, EVERY 3 YEARS
     Route: 059
     Dates: start: 20180821
  2. NEXPLANON [Suspect]
     Active Substance: ETONOGESTREL
     Indication: DYSMENORRHOEA
     Dosage: 1 ROD, EVERY 3 YEARS
     Route: 059
     Dates: start: 20171031, end: 20180821

REACTIONS (4)
  - Amenorrhoea [Recovered/Resolved]
  - Device kink [Recovered/Resolved]
  - Drug ineffective for unapproved indication [Unknown]
  - Product lot number issue [Unknown]

NARRATIVE: CASE EVENT DATE: 20180418
